FAERS Safety Report 8318031-8 (Version None)
Quarter: 2012Q2

REPORT INFORMATION
  Report Type: 
  Country: None (occurrence: None)
  Receive Date: 20120427
  Receipt Date: 20120417
  Transmission Date: 20120825
  Serious: Yes (Death)
  Sender: FDA-Public Use
  Company Number: US-ROCHE-1036827

PATIENT
  Sex: Male

DRUGS (13)
  1. VITAMIN D [Concomitant]
     Dosage: 400 UNITS
  2. SELENIUM [Concomitant]
     Route: 048
  3. COCONUT OIL [Concomitant]
     Dosage: 2 TBS
  4. XELODA [Suspect]
     Indication: PRODUCT USED FOR UNKNOWN INDICATION
  5. GLUCOPHAGE [Concomitant]
     Dates: start: 20090804
  6. SOVENTOL [Concomitant]
     Route: 048
  7. VITAMIN E [Concomitant]
  8. FISH OIL [Concomitant]
  9. ASCORBIC ACID [Concomitant]
  10. CHROMIUM PICOLINATE [Concomitant]
  11. ACTOPLUS MET [Concomitant]
     Dates: start: 20090521
  12. MAGNESIUM [Concomitant]
     Route: 048
  13. VITAMIN B COMPLEX CAP [Concomitant]
     Route: 048

REACTIONS (1)
  - DEATH [None]
